FAERS Safety Report 4385901-5 (Version None)
Quarter: 2004Q2

REPORT INFORMATION
  Report Type: 
  Country: None (occurrence: None)
  Receive Date: 20040628
  Receipt Date: 20040616
  Transmission Date: 20050107
  Serious: Yes (Other)
  Sender: FDA-Public Use
  Company Number: GB-GLAXOSMITHKLINE-B0336123A

PATIENT
  Age: 70 Year
  Sex: Male
  Weight: 89 kg

DRUGS (6)
  1. SALMETEROL [Suspect]
     Dosage: 50MG UNKNOWN
     Dates: start: 20040528, end: 20040528
  2. BETA-ADALAT [Concomitant]
     Dosage: 70MG PER DAY
     Route: 048
     Dates: start: 20010101
  3. SIMVASTATIN [Concomitant]
     Dosage: 20MG PER DAY
     Route: 048
     Dates: start: 20020323
  4. CELECOXIB [Concomitant]
     Dosage: 200MG PER DAY
     Route: 048
     Dates: start: 20020323
  5. BECLOMETHASONE DIPROPIONATE [Concomitant]
     Dosage: 1000MCG PER DAY
     Dates: start: 20010129
  6. ALBUTEROL SULFATE [Concomitant]
     Dates: start: 20010129

REACTIONS (4)
  - HEADACHE [None]
  - HYPOAESTHESIA ORAL [None]
  - OEDEMA MOUTH [None]
  - TENDERNESS [None]
